FAERS Safety Report 20624635 (Version 3)
Quarter: 2024Q2

REPORT INFORMATION
  Report Type: Report from Study
  Country: FR (occurrence: FR)
  Receive Date: 20220322
  Receipt Date: 20240614
  Transmission Date: 20240715
  Serious: Yes (Hospitalization)
  Sender: FDA-Public Use
  Company Number: FR-ABBVIE-22K-056-4323509-00

PATIENT
  Age: 72 Year
  Sex: Female
  Weight: 59 kg

DRUGS (8)
  1. UPADACITINIB [Suspect]
     Active Substance: UPADACITINIB
     Indication: Rheumatoid arthritis
     Dosage: 15 MILLIGRAM
     Route: 048
     Dates: start: 20210913
  2. SARS-COV-2 VACCINE [Concomitant]
     Indication: COVID-19 prophylaxis
     Dosage: TIME INTERVAL: 1 TOTAL
     Route: 030
  3. ACETAMINOPHEN [Concomitant]
     Active Substance: ACETAMINOPHEN
     Indication: Rheumatoid arthritis
     Dosage: TIME INTERVAL: 0.33333333 DAYS
     Route: 048
  4. ACETAMINOPHEN [Concomitant]
     Active Substance: ACETAMINOPHEN
     Indication: Rheumatoid arthritis
     Route: 048
  5. ATORVASTATIN [Concomitant]
     Active Substance: ATORVASTATIN
     Indication: Cerebrovascular accident
     Route: 048
  6. RIVAROXABAN [Concomitant]
     Active Substance: RIVAROXABAN
     Indication: Cerebrovascular accident
     Route: 048
     Dates: start: 202007
  7. VENLAFAXINE [Concomitant]
     Active Substance: VENLAFAXINE HYDROCHLORIDE
     Indication: Depression
     Route: 048
  8. KARDEGIC [Concomitant]
     Active Substance: ASPIRIN DL-LYSINE
     Indication: Cerebrovascular accident
     Route: 048
     Dates: start: 202007

REACTIONS (3)
  - Hemiplegia [Not Recovered/Not Resolved]
  - Extradural haematoma [Recovered/Resolved]
  - Spinal epidural haematoma [Not Recovered/Not Resolved]

NARRATIVE: CASE EVENT DATE: 20220217
